FAERS Safety Report 23073611 (Version 2)
Quarter: 2025Q2

REPORT INFORMATION
  Report Type: Spontaneous
  Country: CR (occurrence: CR)
  Receive Date: 20231017
  Receipt Date: 20250530
  Transmission Date: 20250717
  Serious: Yes (Other)
  Sender: SANDOZ
  Company Number: CR-SANDOZ-SDZ2023CR041738

PATIENT
  Sex: Male

DRUGS (1)
  1. HYRIMOZ [Suspect]
     Active Substance: ADALIMUMAB-ADAZ
     Indication: Psoriatic arthropathy
     Route: 065

REACTIONS (4)
  - Psoriatic arthropathy [Unknown]
  - Gout [Unknown]
  - Fall [Unknown]
  - Product substitution issue [Unknown]
